FAERS Safety Report 4404369-3 (Version None)
Quarter: 2004Q3

REPORT INFORMATION
  Report Type: 
  Country: None (occurrence: None)
  Receive Date: 20040719
  Receipt Date: 20040706
  Transmission Date: 20050211
  Serious: Yes (Death, Life-Threatening, Hospitalization)
  Sender: FDA-Public Use
  Company Number: 2004201174GB

PATIENT
  Age: 91 Year
  Sex: Female

DRUGS (5)
  1. CELEBREX [Suspect]
     Indication: ARTHRITIS
     Dosage: 100 MG, QID, ORAL
     Route: 048
     Dates: end: 20040130
  2. CLOPIDOGREL (CLOPIDOGREL) [Concomitant]
  3. ADIZEM - SLOW RELEASE [Concomitant]
  4. AMITRIPTYLINE HCL [Concomitant]
  5. LORAZEPAM [Concomitant]

REACTIONS (8)
  - ANOREXIA [None]
  - DYSPNOEA [None]
  - GASTRIC ULCER [None]
  - GENERAL PHYSICAL HEALTH DETERIORATION [None]
  - HAEMOGLOBIN DECREASED [None]
  - LETHARGY [None]
  - MALAISE [None]
  - PNEUMONIA [None]
